FAERS Safety Report 17820047 (Version 1)
Quarter: 2020Q2

REPORT INFORMATION
  Report Type: Report from Study
  Country: US (occurrence: US)
  Receive Date: 20200525
  Receipt Date: 20200525
  Transmission Date: 20200714
  Serious: Yes (Other)
  Sender: FDA-Public Use
  Company Number: US-AUROBINDO-AUR-APL-2020-025176

PATIENT
  Age: 66 Year
  Sex: Male

DRUGS (8)
  1. POMALIDOMIDE [Suspect]
     Active Substance: POMALIDOMIDE
     Indication: SALVAGE THERAPY
     Dosage: UNK
     Route: 065
  2. CYCLOPHOSPHAMIDE. [Suspect]
     Active Substance: CYCLOPHOSPHAMIDE
     Dosage: UNK 2 CYCLE
     Route: 065
  3. BORTEZOMIB. [Suspect]
     Active Substance: BORTEZOMIB
     Dosage: UNK 2 CYCLE
     Route: 065
  4. CYCLOPHOSPHAMIDE. [Suspect]
     Active Substance: CYCLOPHOSPHAMIDE
     Indication: IMMUNOSUPPRESSION
     Dosage: UNK 11 CYCLE
     Route: 065
  5. BORTEZOMIB. [Suspect]
     Active Substance: BORTEZOMIB
     Indication: IMMUNOSUPPRESSION
     Dosage: UNK 11 CYCLE
     Route: 065
  6. DARATUMUMAB [Suspect]
     Active Substance: DARATUMUMAB
     Indication: SALVAGE THERAPY
     Dosage: UNK
     Route: 065
  7. DEXAMETHASONE. [Suspect]
     Active Substance: DEXAMETHASONE
     Indication: IMMUNOSUPPRESSION
     Dosage: UNK 2 CYCLE
     Route: 065
  8. DEXAMETHASONE. [Suspect]
     Active Substance: DEXAMETHASONE
     Dosage: UNK 11 CYCLE
     Route: 065

REACTIONS (10)
  - Cardiac amyloidosis [Unknown]
  - N-terminal prohormone brain natriuretic peptide increased [Unknown]
  - Blood creatinine increased [Unknown]
  - Hepatic enzyme increased [Unknown]
  - Blood alkaline phosphatase increased [Unknown]
  - Disease progression [Unknown]
  - Troponin T increased [Unknown]
  - Transplant rejection [Unknown]
  - Hyperbilirubinaemia [Unknown]
  - Chronic kidney disease [Unknown]
